FAERS Safety Report 9364554 (Version 2)
Quarter: 2013Q3

REPORT INFORMATION
  Report Type: Spontaneous
  Country: GB (occurrence: GB)
  Receive Date: 20130624
  Receipt Date: 20130703
  Transmission Date: 20140515
  Serious: Yes (Hospitalization, Other)
  Sender: FDA-Public Use
  Company Number: GB-PFIZER INC-2013183226

PATIENT
  Age: 85 Year
  Sex: Male

DRUGS (8)
  1. ATORVASTATIN [Suspect]
     Dosage: 80 MG, UNK
     Route: 048
     Dates: end: 20130531
  2. WARFARIN [Concomitant]
     Dosage: UNK
  3. ASPIRIN [Concomitant]
     Dosage: UNK
  4. CLOPIDOGREL [Concomitant]
     Dosage: UNK
  5. ISOSORBIDE MONONITRATE [Concomitant]
     Dosage: UNK
  6. DUTASTERIDE [Concomitant]
     Dosage: UNK
  7. ALLOPURINOL [Concomitant]
     Dosage: UNK
  8. FOLIC ACID [Concomitant]
     Dosage: UNK

REACTIONS (5)
  - Rhabdomyolysis [Recovering/Resolving]
  - Renal impairment [Unknown]
  - Hyperkalaemia [Unknown]
  - Blood creatine phosphokinase increased [Unknown]
  - Glomerular filtration rate abnormal [Unknown]
